FAERS Safety Report 20212299 (Version 2)
Quarter: 2023Q2

REPORT INFORMATION
  Report Type: Report from Study
  Country: TW (occurrence: TW)
  Receive Date: 20211221
  Receipt Date: 20230515
  Transmission Date: 20230722
  Serious: Yes (Hospitalization)
  Sender: FDA-Public Use
  Company Number: TW-ABBVIE-18P-153-2570070-00

PATIENT
  Age: 51 Year
  Sex: Female

DRUGS (14)
  1. PLACEBO [Suspect]
     Active Substance: UNSPECIFIED INGREDIENT
     Indication: Rheumatoid arthritis
     Route: 058
     Dates: start: 20170620, end: 20171206
  2. PLACEBO [Suspect]
     Active Substance: UNSPECIFIED INGREDIENT
     Indication: Rheumatoid arthritis
     Route: 048
     Dates: start: 20170620, end: 20171219
  3. METHOTREXATE [Concomitant]
     Active Substance: METHOTREXATE
     Indication: Rheumatoid arthritis
     Route: 048
     Dates: start: 20170429, end: 20170723
  4. METHOTREXATE [Concomitant]
     Active Substance: METHOTREXATE
     Indication: Rheumatoid arthritis
     Route: 048
     Dates: start: 20170304, end: 20170428
  5. METHOTREXATE [Concomitant]
     Active Substance: METHOTREXATE
     Indication: Rheumatoid arthritis
     Route: 048
     Dates: start: 20170724, end: 20181116
  6. FOLIC ACID [Concomitant]
     Active Substance: FOLIC ACID
     Indication: Vitamin supplementation
     Route: 048
     Dates: start: 20170304
  7. ACETAMINOPHEN\TRAMADOL [Concomitant]
     Active Substance: ACETAMINOPHEN\TRAMADOL
     Indication: Rheumatoid arthritis
     Dosage: TIME INTERVAL: AS NECESSARY: 37.5MG/325MG QD
     Route: 048
     Dates: start: 20170429, end: 20170918
  8. ACETAMINOPHEN\TRAMADOL [Concomitant]
     Active Substance: ACETAMINOPHEN\TRAMADOL
     Indication: Rheumatoid arthritis
     Dosage: TIME INTERVAL: AS NECESSARY: 37.5MG/325MG QD
     Route: 048
     Dates: start: 20171030
  9. ULSAFE [Concomitant]
     Indication: Chronic gastritis
     Route: 048
     Dates: start: 20170429
  10. ARTELAC [Concomitant]
     Indication: Dry eye
     Dosage: TIME INTERVAL: 0.33333333 DAYS
     Route: 047
     Dates: start: 20170913
  11. XANAX [Concomitant]
     Active Substance: ALPRAZOLAM
     Indication: Insomnia
     Dosage: EVER NIGHT
     Route: 048
     Dates: start: 20180815
  12. EXELDERM [Concomitant]
     Active Substance: SULCONAZOLE NITRATE
     Indication: Tinea pedis
     Dosage: 10MG/1G
     Route: 061
     Dates: start: 20180411, end: 20181214
  13. UPADACITINIB [Suspect]
     Active Substance: UPADACITINIB
     Indication: Rheumatoid arthritis
     Route: 048
     Dates: start: 20171220, end: 20181116
  14. UPADACITINIB [Suspect]
     Active Substance: UPADACITINIB
     Indication: Rheumatoid arthritis
     Route: 048
     Dates: start: 20181129

REACTIONS (1)
  - Herpes zoster [Recovered/Resolved]

NARRATIVE: CASE EVENT DATE: 20181116
